FAERS Safety Report 8054668-1 (Version None)
Quarter: 2012Q1

REPORT INFORMATION
  Report Type: 
  Country: None (occurrence: None)
  Receive Date: 20120119
  Receipt Date: 20120116
  Transmission Date: 20120608
  Serious: No
  Sender: FDA-Public Use
  Company Number: US-PFIZER INC-2012011666

PATIENT
  Sex: Female

DRUGS (1)
  1. IBUPROFEN (ADVIL) [Suspect]
     Indication: RHEUMATOID ARTHRITIS
     Dosage: UNK, 2X/DAY
     Route: 048

REACTIONS (7)
  - HEAD DISCOMFORT [None]
  - LOCAL SWELLING [None]
  - HEADACHE [None]
  - SWELLING FACE [None]
  - PRURITUS [None]
  - URTICARIA [None]
  - ERYTHEMA [None]
